FAERS Safety Report 10342803 (Version 3)
Quarter: 2014Q3

REPORT INFORMATION
  Report Type: Report from Study
  Country: JP (occurrence: JP)
  Receive Date: 20140725
  Receipt Date: 20140905
  Transmission Date: 20150326
  Serious: No
  Sender: FDA-Public Use
  Company Number: JP-PFIZER INC-2014206792

PATIENT
  Age: 61 Year
  Sex: Male
  Weight: 54 kg

DRUGS (14)
  1. FENTANYL CITRATE. [Concomitant]
     Active Substance: FENTANYL CITRATE
     Indication: SURGERY
     Dosage: 150 UG, UNK
     Dates: start: 20140605
  2. KEPPRA [Concomitant]
     Active Substance: LEVETIRACETAM
     Indication: EPILEPSY
     Dosage: 1000 MG, UNK
     Route: 048
  3. CEFAZOLIN SODIUM. [Concomitant]
     Active Substance: CEFAZOLIN SODIUM
     Indication: SURGERY
     Dosage: 2 G, UNK
     Dates: start: 20140605, end: 20140608
  4. ADONA [Concomitant]
     Active Substance: CARBAZOCHROME SODIUM SULFONATE
     Indication: SURGERY
     Dosage: 50 MG, UNK
     Dates: start: 20140605
  5. TRANSAMIN [Concomitant]
     Active Substance: TRANEXAMIC ACID
     Indication: SURGERY
     Dosage: 1000 MG, UNK
     Dates: start: 20140605
  6. ESLAX [Concomitant]
     Active Substance: ROCURONIUM BROMIDE
     Indication: SURGERY
     Dosage: 110 MG, UNK
     Dates: start: 20140605
  7. FOSPHENYTOIN SODIUM. [Suspect]
     Active Substance: FOSPHENYTOIN SODIUM
     Indication: EPILEPSY
     Dosage: 18 MG/KG AT 1 MG/KG/MIN IN 0.9% PHYSIOLOGICAL SALINE (DILUTION RATIO: 1:10)
     Dates: start: 20140605
  8. GLYCEOL [Concomitant]
     Active Substance: GLYCERIN
     Indication: SURGERY
     Dosage: 200 MG, UNK
     Dates: start: 20140605, end: 20140608
  9. DIPRIVAN [Concomitant]
     Active Substance: PROPOFOL
     Indication: SURGERY
     Dosage: 130 MG, UNK
     Dates: start: 20140605
  10. ULTIVA [Concomitant]
     Active Substance: REMIFENTANIL HYDROCHLORIDE
     Indication: SURGERY
     Dosage: 27 ML, UNK
     Dates: start: 20140605
  11. MYSTAN [Concomitant]
     Active Substance: CLOBAZAM
     Indication: EPILEPSY
     Dosage: 10 MG, UNK
     Route: 048
  12. FOSPHENYTOIN SODIUM. [Suspect]
     Active Substance: FOSPHENYTOIN SODIUM
     Dosage: 7.5 MG/KG/DAY AT 1 MG/KG/MIN IN 0.9% PHYSIOLOGICAL SALINE (DILUTION RATIO: 1:10)
     Dates: start: 20140606
  13. RINDERON V [Concomitant]
     Active Substance: BETAMETHASONE VALERATE
     Indication: SURGERY
     Dosage: 2 MG, UNK
     Dates: start: 20140605, end: 20140607
  14. GASTER [Concomitant]
     Active Substance: FAMOTIDINE
     Indication: SURGERY
     Dosage: 20 MG, UNK
     Dates: start: 20140605, end: 20140606

REACTIONS (1)
  - Delirium [Recovered/Resolved]

NARRATIVE: CASE EVENT DATE: 20140605
